FAERS Safety Report 5283255-3 (Version None)
Quarter: 2007Q2

REPORT INFORMATION
  Report Type: 
  Country: None (occurrence: None)
  Receive Date: 20070402
  Receipt Date: 20070319
  Transmission Date: 20071010
  Serious: Yes (Hospitalization, Other)
  Sender: FDA-Public Use
  Company Number: PHRM2006FR00654

PATIENT
  Age: 58 Year
  Sex: Male
  Weight: 80 kg

DRUGS (8)
  1. GLEEVEC [Suspect]
     Indication: CHRONIC MYELOID LEUKAEMIA
     Dosage: 400 MG DAILY
     Route: 048
     Dates: start: 20021014
  2. GLEEVEC [Suspect]
     Dosage: 800 MG DAILY
     Route: 048
     Dates: start: 20051001, end: 20060111
  3. GLEEVEC [Suspect]
     Dosage: 600 MG DAILY
     Route: 048
     Dates: start: 20060119
  4. TAVANIC [Concomitant]
     Dosage: 1 G DAILY
     Dates: start: 20060102, end: 20060121
  5. MUCOMYST [Concomitant]
     Indication: LUNG DISORDER
     Dates: start: 20060102, end: 20060111
  6. DOLIPRANE [Concomitant]
     Indication: LUNG DISORDER
     Dates: start: 20060102, end: 20060111
  7. ROCEPHIN [Concomitant]
     Indication: LUNG DISORDER
     Dosage: 1 G DAILY
     Dates: start: 20060104, end: 20060111
  8. OFLOCET [Concomitant]
     Indication: LUNG DISORDER
     Dosage: 400 MG DAILY
     Dates: start: 20060104, end: 20060111

REACTIONS (33)
  - AORTIC STENOSIS [None]
  - ARRHYTHMIA [None]
  - BLOOD ALBUMIN DECREASED [None]
  - BLOOD BILIRUBIN INCREASED [None]
  - BLOOD CREATININE INCREASED [None]
  - BLOOD UREA INCREASED [None]
  - C-REACTIVE PROTEIN INCREASED [None]
  - CARDIAC FAILURE [None]
  - CARDIAC MURMUR [None]
  - CHEST X-RAY ABNORMAL [None]
  - CHOLESTASIS [None]
  - CONGESTIVE CARDIOMYOPATHY [None]
  - COUGH [None]
  - DYSPNOEA [None]
  - EJECTION FRACTION DECREASED [None]
  - EYELID OEDEMA [None]
  - GAMMA-GLUTAMYLTRANSFERASE INCREASED [None]
  - HEPATIC FAILURE [None]
  - HYPOTENSION [None]
  - LUNG DISORDER [None]
  - LYMPHOPENIA [None]
  - MITRAL VALVE INCOMPETENCE [None]
  - NORMOCHROMIC NORMOCYTIC ANAEMIA [None]
  - OCULAR ICTERUS [None]
  - ORTHOPNOEA [None]
  - PITTING OEDEMA [None]
  - PROTHROMBIN LEVEL DECREASED [None]
  - PYREXIA [None]
  - RALES [None]
  - RENAL IMPAIRMENT [None]
  - SUPRAVENTRICULAR EXTRASYSTOLES [None]
  - THROMBOCYTOPENIA [None]
  - VENTRICULAR EXTRASYSTOLES [None]
